FAERS Safety Report 9457226 (Version 5)
Quarter: 2014Q4

REPORT INFORMATION
  Report Type: Spontaneous
  Country: US (occurrence: US)
  Receive Date: 20130814
  Receipt Date: 20141217
  Transmission Date: 20150529
  Serious: Yes (Hospitalization, Other)
  Sender: FDA-Public Use
  Company Number: US-BRISTOL-MYERS SQUIBB COMPANY-19174309

PATIENT

DRUGS (26)
  1. AMBIEN [Concomitant]
     Active Substance: ZOLPIDEM TARTRATE
     Dosage: AT BEDTIME.
     Route: 048
  2. ARMOUR THYROID [Concomitant]
     Active Substance: THYROID, PORCINE\THYROID, UNSPECIFIED
     Dosage: 60 MG, QD
     Route: 048
  3. SENOKOT [Concomitant]
     Active Substance: SENNOSIDES
  4. GABAPENTIN. [Concomitant]
     Active Substance: GABAPENTIN
  5. ZANAFLEX [Concomitant]
     Active Substance: TIZANIDINE HYDROCHLORIDE
  6. PAXIL [Concomitant]
     Active Substance: PAROXETINE HYDROCHLORIDE
  7. BYETTA [Suspect]
     Active Substance: EXENATIDE
     Indication: TYPE 2 DIABETES MELLITUS
     Dosage: 10 ?G, BID
     Dates: start: 20060113, end: 20111009
  8. MAGNESIUMOXIDE [Concomitant]
     Active Substance: MAGNESIUM OXIDE
     Dosage: 400 MG, BID
     Route: 048
  9. ATIVAN [Concomitant]
     Active Substance: LORAZEPAM
     Dosage: 1 MG, PRN
  10. LORAZEPAM. [Concomitant]
     Active Substance: LORAZEPAM
     Indication: ANXIETY
     Dosage: 1 MG, PRN
  11. DIGOXIN. [Concomitant]
     Active Substance: DIGOXIN
     Dosage: .125 MG, QD
     Route: 048
  12. PRILOSEC [Concomitant]
     Active Substance: OMEPRAZOLE MAGNESIUM
     Dosage: 20 MG, QD
     Route: 048
  13. OXYCODONE [Concomitant]
     Active Substance: OXYCODONE
  14. PAXIL [Concomitant]
     Active Substance: PAROXETINE HYDROCHLORIDE
     Dosage: 30 MG, QD
     Route: 048
  15. FOLIC ACID. [Concomitant]
     Active Substance: FOLIC ACID
     Dosage: 400 ?G, QD
  16. METOPROLOL [Concomitant]
     Active Substance: METOPROLOL
  17. VITAMIN C [Concomitant]
     Active Substance: ASCORBIC ACID
     Dosage: UNK UNK, QD
  18. FISH OIL [Concomitant]
     Active Substance: FISH OIL
     Dosage: UNK UNK, QD
  19. VITAMIN B12 [Concomitant]
     Active Substance: CYANOCOBALAMIN
  20. ZANAFLEX [Concomitant]
     Active Substance: TIZANIDINE HYDROCHLORIDE
     Dosage: 4 MG, QD
     Route: 048
  21. GEMFIBROZIL. [Concomitant]
     Active Substance: GEMFIBROZIL
     Dosage: 600 MG, QD
     Route: 048
  22. VITAMIN B [Concomitant]
     Active Substance: VITAMIN B
     Dosage: UNK UNK, QD
  23. REGLAN [Concomitant]
     Active Substance: METOCLOPRAMIDE HYDROCHLORIDE
  24. LANTUS [Concomitant]
     Active Substance: INSULIN GLARGINE
     Dosage: 30 UNITS Q.A.M. 15 UNITS AT BEDTIME
  25. METHADONE [Concomitant]
     Active Substance: METHADONE HYDROCHLORIDE
     Dosage: 10 MEQ, QD
     Route: 048
  26. OMEPRAZOL E [Concomitant]
     Active Substance: OMEPRAZOLE
     Dosage: 20 MG, QD
     Route: 048

REACTIONS (1)
  - Adenocarcinoma pancreas [Unknown]

NARRATIVE: CASE EVENT DATE: 201108
